FAERS Safety Report 10068634 (Version 2)
Quarter: 2014Q2

REPORT INFORMATION
  Report Type: Report from Study
  Country: CN (occurrence: CN)
  Receive Date: 20140409
  Receipt Date: 20140411
  Transmission Date: 20141212
  Serious: Yes (Hospitalization)
  Sender: FDA-Public Use
  Company Number: CN-GLAXOSMITHKLINE-B0974383A

PATIENT
  Age: 68 Year
  Sex: Female
  Weight: 60 kg

DRUGS (8)
  1. PLACEBO [Suspect]
     Indication: CHRONIC OBSTRUCTIVE PULMONARY DISEASE
     Dates: start: 20130505
  2. CLOPIDOGREL BISULFATE [Suspect]
     Indication: CARDIOVASCULAR DISORDER
     Dosage: 75MG PER DAY
     Route: 048
     Dates: start: 200309
  3. HYDROCHLOROTHIAZIDE/ENALAPRIL [Concomitant]
     Indication: HYPERTENSION
     Dosage: 10MG TWICE PER DAY
     Route: 048
     Dates: start: 20140219
  4. NORVASC [Concomitant]
     Indication: HYPERTENSION
     Dosage: 5MG PER DAY
     Route: 048
     Dates: start: 200309
  5. BETALOC [Concomitant]
     Indication: HYPERTENSION
     Dosage: 25MG TWICE PER DAY
     Route: 048
     Dates: start: 200309
  6. ISOSORBIDE MONONITRATE [Concomitant]
     Indication: ANGINA UNSTABLE
     Dosage: 50MG PER DAY
     Route: 048
     Dates: start: 200309
  7. SALBUTAMOL [Concomitant]
     Indication: CHRONIC OBSTRUCTIVE PULMONARY DISEASE
     Route: 055
     Dates: start: 20130222
  8. FELODIPINE [Concomitant]
     Indication: HYPERTENSION
     Dosage: 5MG PER DAY
     Route: 048
     Dates: start: 20140219

REACTIONS (1)
  - Lung infection [Recovered/Resolved]
